FAERS Safety Report 16216537 (Version 1)
Quarter: 2019Q2

REPORT INFORMATION
  Report Type: Spontaneous
  Country: DE (occurrence: DE)
  Receive Date: 20190419
  Receipt Date: 20190419
  Transmission Date: 20190711
  Serious: Yes (Congenital Anomaly, Other)
  Sender: FDA-Public Use
  Company Number: DE-AUROBINDO-AUR-APL-2019-020780

PATIENT

DRUGS (3)
  1. L-THYROXIN [Concomitant]
     Active Substance: LEVOTHYROXINE SODIUM
     Indication: HYPOTHYROIDISM
     Dosage: 50 MICROGRAM, ONCE A DAY, 39.6 TO 39.6. GESTATIONAL WEEK
     Route: 064
     Dates: start: 20180525, end: 20180525
  2. INFLUENZA VACCINE [Concomitant]
     Active Substance: INFLUENZA VIRUS VACCINE
     Indication: IMMUNISATION
     Dosage: UNK, DURING UNKNOWN TRIMESTER
     Route: 064
  3. CITALOPRAM [Suspect]
     Active Substance: CITALOPRAM HYDROBROMIDE
     Indication: OBSESSIVE-COMPULSIVE DISORDER
     Dosage: 10 MILLIGRAM, ONCE A DAY, 0 TO 39.6. GESTATIONAL WEEK
     Route: 064
     Dates: start: 20170819, end: 20180525

REACTIONS (4)
  - Bradycardia neonatal [Recovered/Resolved]
  - Foetal exposure during pregnancy [Unknown]
  - Oral neoplasm benign [Recovered/Resolved with Sequelae]
  - Supraventricular extrasystoles [Recovered/Resolved]

NARRATIVE: CASE EVENT DATE: 20180525
